FAERS Safety Report 8853445 (Version 3)
Quarter: 2012Q4

REPORT INFORMATION
  Report Type: 
  Country: JP (occurrence: JP)
  Receive Date: 20121022
  Receipt Date: 20121029
  Transmission Date: 20130627
  Serious: Yes (Life-Threatening, Hospitalization)
  Sender: FDA-Public Use
  Company Number: JP-GLAXOSMITHKLINE-B0838896A

PATIENT
  Age: 81 None
  Sex: Male

DRUGS (7)
  1. PAXIL [Suspect]
     Indication: DEPRESSION
     Dosage: 10MG Per day
     Route: 048
     Dates: end: 20121014
  2. DEPAKENE [Concomitant]
     Indication: EPILEPSY
     Dosage: 200MG Twice per day
     Route: 048
     Dates: end: 20121014
  3. KETAS [Concomitant]
     Indication: RHINITIS ALLERGIC
     Dosage: 10MG Three times per day
     Route: 048
     Dates: end: 20121014
  4. FERROMIA [Concomitant]
     Indication: IRON DEFICIENCY ANAEMIA
     Dosage: 50MG Per day
     Route: 048
     Dates: end: 20121014
  5. DIOVAN [Concomitant]
     Indication: HYPERTENSION
     Dosage: 160MG Per day
     Route: 048
     Dates: end: 20121014
  6. LOCHOL [Concomitant]
     Indication: HYPERLIPIDAEMIA
     Dosage: 30MG Per day
     Route: 048
     Dates: end: 20121014
  7. NORVASC [Concomitant]
     Indication: HYPERTENSION
     Dosage: 5MG Per day
     Route: 048
     Dates: end: 20121014

REACTIONS (16)
  - Drug reaction with eosinophilia and systemic symptoms [Not Recovered/Not Resolved]
  - General physical health deterioration [Unknown]
  - Pyrexia [Recovered/Resolved]
  - Rash [Recovering/Resolving]
  - Hypersensitivity [Unknown]
  - White blood cell count increased [Unknown]
  - Platelet count increased [Unknown]
  - Eosinophil percentage increased [Unknown]
  - Lymphocyte percentage decreased [Unknown]
  - Alanine aminotransferase increased [Unknown]
  - Aspartate aminotransferase increased [Unknown]
  - Blood lactate dehydrogenase increased [Unknown]
  - C-reactive protein increased [Unknown]
  - Epstein-Barr virus antibody positive [Unknown]
  - Epstein-Barr virus antigen positive [Unknown]
  - Blood immunoglobulin E increased [Unknown]
